FAERS Safety Report 14631647 (Version 6)
Quarter: 2018Q2

REPORT INFORMATION
  Report Type: Spontaneous
  Country: US (occurrence: US)
  Receive Date: 20180313
  Receipt Date: 20180409
  Transmission Date: 20180711
  Serious: Yes (Other)
  Sender: FDA-Public Use
  Company Number: US-SA-2018SA048381

PATIENT
  Age: 58 Year
  Sex: Female

DRUGS (4)
  1. SOLOSTAR [Suspect]
     Active Substance: DEVICE
     Indication: TYPE 2 DIABETES MELLITUS
  2. LANTUS SOLOSTAR [Suspect]
     Active Substance: INSULIN GLARGINE
     Indication: TYPE 2 DIABETES MELLITUS
     Dosage: DOSE: 26-34 UNITS
     Route: 051
  3. SOLOSTAR [Suspect]
     Active Substance: DEVICE
     Indication: TYPE 2 DIABETES MELLITUS
  4. LANTUS SOLOSTAR [Suspect]
     Active Substance: INSULIN GLARGINE
     Indication: TYPE 2 DIABETES MELLITUS
     Dosage: DOSE: 26-34 UNITS
     Route: 051

REACTIONS (9)
  - Nervous system disorder [Unknown]
  - Limb discomfort [Unknown]
  - Renal disorder [Unknown]
  - Injection site pain [Unknown]
  - Blood glucose abnormal [Unknown]
  - Product use issue [Unknown]
  - Eye disorder [Unknown]
  - Intervertebral disc degeneration [Unknown]
  - Disability [Unknown]
